FAERS Safety Report 5414175-9 (Version None)
Quarter: 2007Q3

REPORT INFORMATION
  Report Type: 
  Country: None (occurrence: None)
  Receive Date: 20070713
  Receipt Date: 20070119
  Transmission Date: 20080115
  Serious: Yes (Hospitalization, Other)
  Sender: FDA-Public Use
  Company Number: US-JNJFOC-20061005019

PATIENT
  Age: 43 Year
  Sex: Female
  Weight: 82.1011 kg

DRUGS (2)
  1. ORTHO EVRA [Suspect]
     Indication: MENOMETRORRHAGIA
     Dosage: TRANSDERMAL
     Route: 062
     Dates: start: 20050301, end: 20050401
  2. IRON (IRON) [Concomitant]

REACTIONS (3)
  - OFF LABEL USE [None]
  - PULMONARY EMBOLISM [None]
  - THROMBOPHLEBITIS [None]
